FAERS Safety Report 11876045 (Version 1)
Quarter: 2015Q4

REPORT INFORMATION
  Report Type: Spontaneous
  Country: US (occurrence: US)
  Receive Date: 20151229
  Receipt Date: 20151229
  Transmission Date: 20160305
  Serious: No
  Sender: FDA-Public Use
  Company Number: US-ALK ABELLO INC-1045974

PATIENT
  Age: 55 Year
  Sex: Female

DRUGS (39)
  1. POLLENS - WEEDS, CARELESS/PIGWEED MIX [Suspect]
     Active Substance: AMARANTHUS PALMERI POLLEN\AMARANTHUS RETROFLEXUS POLLEN
  2. LAMBS QUARTERS POLLEN [Suspect]
     Active Substance: CHENOPODIUM ALBUM POLLEN
  3. ENGLISH PLANTAIN POLLEN [Suspect]
     Active Substance: PLANTAGO LANCEOLATA POLLEN
  4. EPICOCCUM NIGRUM. [Suspect]
     Active Substance: EPICOCCUM NIGRUM
  5. CAT PELT, STANDARDIZED [Suspect]
     Active Substance: FELIS CATUS SKIN
  6. WHITE ASH POLLEN [Suspect]
     Active Substance: FRAXINUS AMERICANA POLLEN
  7. ALTERNARIA TENUIS [Suspect]
     Active Substance: ALTERNARIA ALTERNATA
  8. ALLERGENIC EXTRACT- COCKROACH PERIPLANETA AMERICANA. [Suspect]
     Active Substance: ALLERGENIC EXTRACT- COCKROACH PERIPLANETA AMERICANA
  9. EASTERN COTTONWOOD POLLEN [Suspect]
     Active Substance: POPULUS DELTOIDES POLLEN
  10. STANDARDIZED GRASS POLLEN, TIMOTHY [Suspect]
     Active Substance: PHLEUM PRATENSE POLLEN
  11. LAXATIVE (POLYETHYLENE GLYCOL 3350) [Concomitant]
     Active Substance: POLYETHYLENE GLYCOL 3350
  12. COCKLEBUR POLLEN [Suspect]
     Active Substance: XANTHIUM STRUMARIUM POLLEN
  13. CANDIDA [Suspect]
     Active Substance: CANDIDA ALBICANS
  14. HOUSE DUST MITE, DERMATOPHAGOIDES FARINAE [Suspect]
     Active Substance: DERMATOPHAGOIDES FARINAE
  15. HOUSE DUST MITE, DERMATOPHAGOIDES PTERONYSSINUS [Suspect]
     Active Substance: DERMATOPHAGOIDES PTERONYSSINUS
  16. AMERICAN ELM POLLEN [Suspect]
     Active Substance: ULMUS AMERICANA POLLEN
  17. BENAZEPRIL [Concomitant]
     Active Substance: BENAZEPRIL HYDROCHLORIDE
  18. RAGWEED MIXTURE [Suspect]
     Active Substance: AMBROSIA ARTEMISIIFOLIA POLLEN\AMBROSIA BIDENTATA POLLEN\AMBROSIA PSILOSTACHYA POLLEN\AMBROSIA TRIFIDA POLLEN
  19. DOCK/SORREL MIXTURE [Suspect]
     Active Substance: RUMEX ACETOSELLA POLLEN\RUMEX CRISPUS POLLEN
  20. HORMODENDRUM [Suspect]
     Active Substance: CLADOSPORIUM CLADOSPORIOIDES
  21. FEATHER MIX, CHICKEN/DUCK/GOOSE [Suspect]
     Active Substance: ANAS PLATYRHYNCHOS FEATHER\ANSER ANSER FEATHER\GALLUS GALLUS FEATHER
  22. BAHIA GRASS POLLEN [Suspect]
     Active Substance: PASPALUM NOTATUM POLLEN
  23. CITALOPRAM [Concomitant]
     Active Substance: CITALOPRAM HYDROBROMIDE
  24. ZOLPIDEM [Concomitant]
     Active Substance: ZOLPIDEM\ZOLPIDEM TARTRATE
  25. SINGULAIR [Concomitant]
     Active Substance: MONTELUKAST SODIUM
  26. POLLENS - TREES, OAK MIX [Suspect]
     Active Substance: QUERCUS ALBA POLLEN\QUERCUS RUBRA POLLEN\QUERCUS VIRGINIANA POLLEN
  27. JOHNSON GRASS [Suspect]
     Active Substance: SORGHUM HALEPENSE POLLEN
  28. ASPERGILLUS FUMIGATUS. [Suspect]
     Active Substance: ASPERGILLUS FUMIGATUS
  29. MAPLE POLLEN MIXTURE [Suspect]
     Active Substance: ACER RUBRUM POLLEN\ACER SACCHARINUM POLLEN\ACER SACCHARUM POLLEN
  30. PENICILLIUM NOTATUM [Suspect]
     Active Substance: PENICILLIUM CHRYSOGENUM VAR. CHRYSOGENUM
  31. BERMUDA GRASS, STANDARDIZED [Suspect]
     Active Substance: CYNODON DACTYLON POLLEN
  32. PREMARIN [Concomitant]
     Active Substance: ESTROGENS, CONJUGATED
  33. HELMINTHOSPORIUM [Suspect]
     Active Substance: COCHLIOBOLUS SATIVUS
  34. DOG HAIR [Suspect]
     Active Substance: CANIS LUPUS FAMILIARIS HAIR
  35. PECAN POLLEN [Suspect]
     Active Substance: CARYA ILLINOINENSIS POLLEN
  36. POLLENS - TREES, PINE MIX [Suspect]
     Active Substance: PINUS CONTORTA POLLEN\PINUS PONDEROSA POLLEN
  37. MEADOW FESCUE GRASS, STANDARDIZED [Suspect]
     Active Substance: FESTUCA PRATENSIS POLLEN
  38. TIROSINT [Concomitant]
     Active Substance: LEVOTHYROXINE SODIUM
  39. ZETIA [Concomitant]
     Active Substance: EZETIMIBE

REACTIONS (3)
  - Pyrexia [Recovered/Resolved]
  - Pain of skin [Recovered/Resolved]
  - Urticaria [Recovered/Resolved]

NARRATIVE: CASE EVENT DATE: 20150319
